FAERS Safety Report 7484928-4 (Version None)
Quarter: 2011Q2

REPORT INFORMATION
  Report Type: 
  Country: None (occurrence: None)
  Receive Date: 20110517
  Receipt Date: 20110503
  Transmission Date: 20111010
  Serious: Yes (Hospitalization)
  Sender: FDA-Public Use
  Company Number: B0718908A

PATIENT
  Age: 27 Year
  Sex: Female

DRUGS (4)
  1. RITONAVIR [Suspect]
     Indication: HIV INFECTION
     Route: 065
  2. INSULIN [Concomitant]
  3. ABACAVIR SULFATE/LAMIVUDINE [Suspect]
     Indication: HIV INFECTION
     Dates: start: 20070801
  4. LOPINAVIR [Suspect]

REACTIONS (8)
  - HYPOGLYCAEMIA [None]
  - TUBERCULOSIS [None]
  - PANCYTOPENIA [None]
  - IMMUNE RECONSTITUTION SYNDROME [None]
  - INSULIN RESISTANCE [None]
  - WEIGHT DECREASED [None]
  - GENERAL PHYSICAL HEALTH DETERIORATION [None]
  - HYPERGLYCAEMIA [None]
